FAERS Safety Report 23167336 (Version 1)
Quarter: 2023Q4

REPORT INFORMATION
  Report Type: Report from Study
  Country: US (occurrence: US)
  Receive Date: 20231109
  Receipt Date: 20231109
  Transmission Date: 20240109
  Serious: Yes (Hospitalization, Other)
  Sender: FDA-Public Use
  Company Number: US-ABBVIE-5484478

PATIENT
  Sex: Male

DRUGS (1)
  1. HUMIRA [Suspect]
     Active Substance: ADALIMUMAB
     Indication: Psoriasis
     Route: 058

REACTIONS (4)
  - Large intestinal ulcer haemorrhage [Recovering/Resolving]
  - Anaemia [Recovering/Resolving]
  - Gastrointestinal surgery [Recovering/Resolving]
  - Haemoglobin decreased [Recovering/Resolving]
